FAERS Safety Report 4267245-5 (Version None)
Quarter: 2004Q1

REPORT INFORMATION
  Report Type: 
  Country: None (occurrence: None)
  Receive Date: 20040107
  Receipt Date: 20031229
  Transmission Date: 20041129
  Serious: Yes (Other)
  Sender: FDA-Public Use
  Company Number: US-JNJFOC-20031104372

PATIENT
  Age: 84 Year
  Sex: Female
  Weight: 42.1845 kg

DRUGS (12)
  1. REMICADE [Suspect]
     Indication: RHEUMATOID ARTHRITIS
     Dosage: 4.7 MG/KG. INTRAVENOUS
     Route: 042
     Dates: start: 20030101
  2. REMICADE [Suspect]
     Indication: RHEUMATOID ARTHRITIS
     Dosage: 4.7 MG/KG. INTRAVENOUS
     Route: 042
     Dates: start: 20031110
  3. MTX (METHOTREXATE SDODIUM) [Concomitant]
  4. FOSAMAX [Concomitant]
  5. FOLIC ACID [Concomitant]
  6. CALCIUM (CALCIUM) [Concomitant]
  7. PROZAC [Concomitant]
  8. METHYLPREDNISOLONE [Concomitant]
  9. ASPIRIN [Concomitant]
  10. DARVOCET (PROPACET) [Concomitant]
  11. SYNTHROID [Concomitant]
  12. REMERON [Concomitant]

REACTIONS (6)
  - CHEST DISCOMFORT [None]
  - DYSPNOEA [None]
  - ERYTHEMA [None]
  - HYPOTENSION [None]
  - NAUSEA [None]
  - VOMITING [None]
